FAERS Safety Report 23435874 (Version 1)
Quarter: 2024Q1

REPORT INFORMATION
  Report Type: Spontaneous
  Country: US (occurrence: US)
  Receive Date: 20240124
  Receipt Date: 20240124
  Transmission Date: 20240409
  Serious: No
  Sender: FDA-Public Use
  Company Number: US-JNJFOC-20240156244

PATIENT
  Age: 28 Year
  Sex: Female

DRUGS (2)
  1. OPSUMIT [Suspect]
     Active Substance: MACITENTAN
     Indication: Product used for unknown indication
     Route: 048
  2. TYVASO DPI [Suspect]
     Active Substance: TREPROSTINIL
     Indication: Pulmonary arterial hypertension
     Route: 055
     Dates: start: 202308

REACTIONS (5)
  - Chest pain [Recovering/Resolving]
  - Dizziness [Unknown]
  - Nasal congestion [Unknown]
  - Headache [Unknown]
  - Oedema peripheral [Recovering/Resolving]
